FAERS Safety Report 6967375-0 (Version None)
Quarter: 2010Q3

REPORT INFORMATION
  Report Type: 
  Country: None (occurrence: None)
  Receive Date: 20100901
  Receipt Date: 20100823
  Transmission Date: 20110219
  Serious: Yes (Hospitalization)
  Sender: FDA-Public Use
  Company Number: PHHY2010TW55762

PATIENT
  Sex: Male

DRUGS (2)
  1. VISUDYNE [Suspect]
     Indication: MACULAR DEGENERATION
     Dates: start: 20100813, end: 20100813
  2. LUCENTIS [Suspect]
     Indication: MACULAR DEGENERATION
     Dates: start: 20100813, end: 20100813

REACTIONS (1)
  - CEREBROVASCULAR ACCIDENT [None]
